FAERS Safety Report 11995177 (Version 1)
Quarter: 2016Q1

REPORT INFORMATION
  Report Type: Spontaneous
  Country: US (occurrence: US)
  Receive Date: 20160203
  Receipt Date: 20160203
  Transmission Date: 20160526
  Serious: No
  Sender: FDA-Public Use
  Company Number: US-UCBSA-2015015089

PATIENT
  Age: 40 Year
  Sex: Female
  Weight: 200 kg

DRUGS (2)
  1. KEPPRA XR [Suspect]
     Active Substance: LEVETIRACETAM
     Indication: GENERALISED TONIC-CLONIC SEIZURE
     Dosage: 2000 MG, IN THE MORNING AND 1500 MG, IN THE EVENING, 2X/DAY (BID)
     Dates: start: 2010
  2. ZONEGRAN [Concomitant]
     Active Substance: ZONISAMIDE
     Indication: PRODUCT USED FOR UNKNOWN INDICATION
     Dosage: 5 MG, ONCE DAILY (QD)

REACTIONS (4)
  - Seizure [Recovering/Resolving]
  - Overdose [Unknown]
  - Off label use [Unknown]
  - Inappropriate schedule of drug administration [Unknown]

NARRATIVE: CASE EVENT DATE: 201407
